FAERS Safety Report 7430051-4 (Version None)
Quarter: 2011Q2

REPORT INFORMATION
  Report Type: 
  Country: None (occurrence: None)
  Receive Date: 20110421
  Receipt Date: 20091122
  Transmission Date: 20111010
  Serious: Yes (Hospitalization, Other)
  Sender: FDA-Public Use
  Company Number: US-BAYER-200940288NA

PATIENT
  Age: 18 Year
  Sex: Male
  Weight: 81.633 kg

DRUGS (9)
  1. CEFAZOLIN [Concomitant]
     Dosage: 2 G, UNK
     Route: 042
     Dates: start: 20040812
  2. SODIUM NITROPRUSSIDE [Concomitant]
     Dosage: UNK
     Route: 042
     Dates: start: 20040812
  3. ATENOLOL [Concomitant]
     Dosage: 50 MG, UNK
     Route: 048
     Dates: start: 20040528
  4. HEPARIN [Concomitant]
     Dosage: 26000 U, UNK
     Route: 042
     Dates: start: 20040812
  5. PANCURONIUM BROMIDE [Concomitant]
     Dosage: UNK
     Route: 042
     Dates: start: 20040812
  6. PROTAMINE SULFATE [Concomitant]
     Dosage: 300 MG, UNK
     Route: 042
     Dates: start: 20040812
  7. TRASYLOL [Suspect]
     Indication: AORTIC VALVE REPLACEMENT
     Dosage: 150CC, FOLLOWED BY 75CC/HR
     Route: 042
     Dates: start: 20040812, end: 20040812
  8. MIDAZOLAM [Concomitant]
     Route: 042
  9. MILRINONE [Concomitant]
     Dosage: UNK
     Route: 042
     Dates: start: 20040812

REACTIONS (11)
  - ANHEDONIA [None]
  - RENAL IMPAIRMENT [None]
  - FEAR [None]
  - PAIN [None]
  - INJURY [None]
  - RENAL INJURY [None]
  - STRESS [None]
  - UNEVALUABLE EVENT [None]
  - RENAL FAILURE [None]
  - EMOTIONAL DISTRESS [None]
  - ANXIETY [None]
